FAERS Safety Report 24803690 (Version 6)
Quarter: 2025Q3

REPORT INFORMATION
  Report Type: Report from Study
  Country: US (occurrence: US)
  Receive Date: 20250103
  Receipt Date: 20250723
  Transmission Date: 20251020
  Serious: Yes (Other)
  Sender: UCB
  Company Number: US-UCBSA-2025000143

PATIENT
  Age: 21 Year
  Sex: Male
  Weight: 88.45 kg

DRUGS (14)
  1. FINTEPLA [Suspect]
     Active Substance: FENFLURAMINE
     Indication: Epilepsy
     Route: 048
     Dates: start: 20210309
  2. FINTEPLA [Suspect]
     Active Substance: FENFLURAMINE
     Indication: Aortic valve stenosis
     Dosage: 25.96 MILLILITER, ONCE DAILY (QD)
     Route: 048
     Dates: start: 20210602
  3. FINTEPLA [Suspect]
     Active Substance: FENFLURAMINE
     Indication: Off label use
     Route: 048
     Dates: start: 20210903
  4. FINTEPLA [Suspect]
     Active Substance: FENFLURAMINE
     Route: 048
     Dates: start: 20210903
  5. FINTEPLA [Suspect]
     Active Substance: FENFLURAMINE
     Route: 048
     Dates: start: 20241008
  6. FINTEPLA [Suspect]
     Active Substance: FENFLURAMINE
     Dosage: 4 MILLILITER, 2X/DAY (BID)
     Route: 048
     Dates: start: 20250108
  7. FYCOMPA [Concomitant]
     Active Substance: PERAMPANEL
     Indication: Seizure
  8. DIAZEPAM [Concomitant]
     Active Substance: DIAZEPAM
     Indication: Seizure
     Route: 045
     Dates: start: 20231227, end: 20241226
  9. LAMOTRIGINE [Concomitant]
     Active Substance: LAMOTRIGINE
     Indication: Product used for unknown indication
     Dates: start: 20240603
  10. PERAMPANEL [Concomitant]
     Active Substance: PERAMPANEL
     Indication: Product used for unknown indication
     Dosage: 6 MILLIGRAM, 2X/DAY (BID)
     Route: 048
  11. MIRALAX [Concomitant]
     Active Substance: POLYETHYLENE GLYCOL 3350
     Indication: Product used for unknown indication
     Dosage: 17 GRAM, ONCE DAILY (QD)
     Route: 048
     Dates: start: 20220121
  12. BUSPAR [Concomitant]
     Active Substance: BUSPIRONE HYDROCHLORIDE
     Indication: Product used for unknown indication
     Dosage: 2 TABLETS BY MOUTH 3 TIMES A DAY
     Route: 048
     Dates: start: 20240702, end: 20241223
  13. CLOBAZAM [Concomitant]
     Active Substance: CLOBAZAM
     Indication: Product used for unknown indication
     Route: 048
     Dates: start: 20241126, end: 20250127
  14. XCOPRI [Concomitant]
     Active Substance: CENOBAMATE
     Indication: Product used for unknown indication
     Route: 048

REACTIONS (4)
  - Aortic valve incompetence [Unknown]
  - Tricuspid valve incompetence [Recovered/Resolved]
  - Right ventricular systolic pressure increased [Recovered/Resolved]
  - Off label use [Unknown]

NARRATIVE: CASE EVENT DATE: 20210309
